FAERS Safety Report 12833366 (Version 2)
Quarter: 2016Q4

REPORT INFORMATION
  Report Type: Report from Study
  Country: CN (occurrence: CN)
  Receive Date: 20161010
  Receipt Date: 20161111
  Transmission Date: 20170207
  Serious: Yes (Hospitalization, Other)
  Sender: FDA-Public Use
  Company Number: CN-ACTELION-A-CH2016-139937

PATIENT
  Age: 52 Year
  Sex: Female

DRUGS (5)
  1. TRACLEER [Suspect]
     Active Substance: BOSENTAN
     Dosage: 62.5 MG, BID
     Route: 048
     Dates: start: 201411
  2. FUROSEMIDE. [Concomitant]
     Active Substance: FUROSEMIDE
     Indication: PRODUCT USED FOR UNKNOWN INDICATION
     Dosage: UNK
     Dates: start: 201411
  3. BERAPROST [Concomitant]
     Active Substance: BERAPROST
     Indication: PRODUCT USED FOR UNKNOWN INDICATION
     Dosage: UNK
     Dates: start: 2016
  4. TRACLEER [Suspect]
     Active Substance: BOSENTAN
     Indication: PULMONARY ARTERIAL HYPERTENSION
     Dosage: 125 MG, BID
     Route: 048
     Dates: end: 201604
  5. POTASSIUM CHLORIDE. [Concomitant]
     Active Substance: POTASSIUM CHLORIDE
     Indication: PRODUCT USED FOR UNKNOWN INDICATION
     Dosage: UNK
     Dates: start: 201411

REACTIONS (16)
  - Splenomegaly [Unknown]
  - Nausea [Recovering/Resolving]
  - Right ventricular failure [Unknown]
  - Abdominal pain [Unknown]
  - Jaundice [Unknown]
  - Hepatic enzyme increased [Recovering/Resolving]
  - Hepatomegaly [Unknown]
  - Hypotension [Unknown]
  - Pruritus [Recovering/Resolving]
  - Pulmonary hypertension [Unknown]
  - Vomiting [Recovering/Resolving]
  - Ascites [Unknown]
  - Lymphadenopathy [Unknown]
  - Pyrexia [Recovering/Resolving]
  - Coma [Unknown]
  - Asthenia [Unknown]

NARRATIVE: CASE EVENT DATE: 201604
